FAERS Safety Report 7116684-3 (Version None)
Quarter: 2010Q4

REPORT INFORMATION
  Report Type: 
  Country: None (occurrence: None)
  Receive Date: 20101122
  Receipt Date: 20101116
  Transmission Date: 20110411
  Serious: Yes (Hospitalization)
  Sender: FDA-Public Use
  Company Number: B0684665A

PATIENT
  Sex: Female

DRUGS (7)
  1. AUGMENTIN [Suspect]
     Dosage: 1G TWICE PER DAY
     Route: 048
     Dates: start: 20101001, end: 20101003
  2. BIPROFENID [Suspect]
     Dosage: 75MG PER DAY
     Route: 048
     Dates: start: 20100928, end: 20101003
  3. PARIET [Suspect]
     Dosage: 20MG PER DAY
     Route: 048
     Dates: start: 20100920, end: 20101003
  4. TARDYFERON [Concomitant]
     Route: 048
  5. MAGNE B6 [Concomitant]
     Route: 048
  6. TOPALGIC (FRANCE) [Concomitant]
     Route: 048
  7. DAFALGAN [Concomitant]
     Route: 065

REACTIONS (4)
  - AGRANULOCYTOSIS [None]
  - DYSURIA [None]
  - PYREXIA [None]
  - RASH MORBILLIFORM [None]
